FAERS Safety Report 5938127-5 (Version None)
Quarter: 2008Q4

REPORT INFORMATION
  Report Type: 
  Country: None (occurrence: None)
  Receive Date: 20081031
  Receipt Date: 20081022
  Transmission Date: 20090506
  Serious: Yes (Life-Threatening)
  Sender: FDA-Public Use
  Company Number: DE-VALEANT-2008VX002099

PATIENT
  Age: 56 Year
  Sex: Female
  Weight: 56 kg

DRUGS (3)
  1. FLURAZEPAM HYDROCHLORIDE [Suspect]
     Route: 048
  2. DORMUTIL N [Suspect]
     Route: 048
  3. ALCOHOL [Suspect]
     Route: 065

REACTIONS (4)
  - DYSARTHRIA [None]
  - SUICIDE ATTEMPT [None]
  - TACHYCARDIA [None]
  - VOMITING [None]
